FAERS Safety Report 21882356 (Version 3)
Quarter: 2023Q1

REPORT INFORMATION
  Report Type: Report from Study
  Country: CA (occurrence: CA)
  Receive Date: 20230119
  Receipt Date: 20230223
  Transmission Date: 20230418
  Serious: Yes (Death, Other)
  Sender: FDA-Public Use
  Company Number: CA-Melinta Therapeutics, LLC-CA-MLNT-23-00024

PATIENT
  Age: 65 Year
  Sex: Female
  Weight: 91.8 kg

DRUGS (92)
  1. VABOMERE [Suspect]
     Active Substance: MEROPENEM\VABORBACTAM
     Indication: Enterobacter pneumonia
     Route: 042
     Dates: start: 20230106, end: 20230106
  2. VABOMERE [Suspect]
     Active Substance: MEROPENEM\VABORBACTAM
     Route: 042
     Dates: start: 20230107, end: 20230107
  3. VABOMERE [Suspect]
     Active Substance: MEROPENEM\VABORBACTAM
     Route: 042
     Dates: start: 20230108, end: 20230108
  4. VABOMERE [Suspect]
     Active Substance: MEROPENEM\VABORBACTAM
     Route: 042
     Dates: start: 20230109, end: 20230109
  5. VABOMERE [Suspect]
     Active Substance: MEROPENEM\VABORBACTAM
     Route: 042
     Dates: start: 20230110, end: 20230110
  6. HUMALOG [Concomitant]
     Active Substance: INSULIN LISPRO
     Indication: Product used for unknown indication
     Dosage: VIAL 3 ML, 8 AM, 12 PM, 4
     Route: 058
     Dates: start: 20221228, end: 20221229
  7. HUMALOG [Concomitant]
     Active Substance: INSULIN LISPRO
     Dosage: VIAL 3 ML, 8 AM, 12 PM, 4 PM
     Route: 058
     Dates: start: 20221229, end: 20221229
  8. HUMALOG [Concomitant]
     Active Substance: INSULIN LISPRO
     Dosage: VIAL 3 ML, 12 AM, 6 AM, 12 PM
     Route: 058
     Dates: start: 20221229, end: 20230113
  9. GLYCOPYRRONIUM\INDACATEROL [Concomitant]
     Active Substance: GLYCOPYRRONIUM\INDACATEROL
     Indication: Product used for unknown indication
     Dates: start: 20221228, end: 20221229
  10. GLYCOPYRRONIUM\INDACATEROL [Concomitant]
     Active Substance: GLYCOPYRRONIUM\INDACATEROL
     Indication: Product used for unknown indication
     Dosage: BOX OF 10 CAPS., 50-110 MCG/CAPS, AT 8 AM
     Dates: start: 20221228, end: 20221229
  11. PERINDOPRIL [Concomitant]
     Active Substance: PERINDOPRIL
     Indication: Product used for unknown indication
     Dosage: AT 8 AM
     Route: 048
     Dates: start: 20221228, end: 20221229
  12. INDAPAMIDE [Concomitant]
     Active Substance: INDAPAMIDE
     Indication: Product used for unknown indication
     Dosage: AT 8 AM
     Route: 048
     Dates: start: 20221228, end: 20221229
  13. VENTOLIN HFA [Concomitant]
     Active Substance: ALBUTEROL SULFATE
     Indication: Product used for unknown indication
     Dosage: 12 AM, 4 AM, 8 AM
     Dates: start: 20221228, end: 20221229
  14. VENTOLIN HFA [Concomitant]
     Active Substance: ALBUTEROL SULFATE
     Dates: start: 20221228, end: 20221229
  15. VENTOLIN HFA [Concomitant]
     Active Substance: ALBUTEROL SULFATE
     Dosage: 12 AM, 4 AM, 8 AM
     Dates: start: 20221229, end: 20230113
  16. VENTOLIN HFA [Concomitant]
     Active Substance: ALBUTEROL SULFATE
     Dates: start: 20221229, end: 20230113
  17. DILAUDID [Concomitant]
     Active Substance: HYDROMORPHONE HYDROCHLORIDE
     Indication: Product used for unknown indication
     Route: 048
     Dates: start: 20221228, end: 20221229
  18. DILAUDID [Concomitant]
     Active Substance: HYDROMORPHONE HYDROCHLORIDE
     Dosage: 1 ML AMPULE
     Route: 058
     Dates: start: 20221228, end: 20221229
  19. ATASOL FORT [Concomitant]
     Indication: Product used for unknown indication
     Route: 048
     Dates: start: 20221228, end: 20221229
  20. ATASOL FORT [Concomitant]
     Dosage: 500 TO 1000 MG
     Route: 048
     Dates: start: 20221229, end: 20230113
  21. CRESTOR [Concomitant]
     Active Substance: ROSUVASTATIN CALCIUM
     Indication: Product used for unknown indication
     Dosage: AT BEDTIME, 8 PM
     Route: 048
     Dates: start: 20221228, end: 20221229
  22. XARELTO [Concomitant]
     Active Substance: RIVAROXABAN
     Indication: Product used for unknown indication
     Dosage: AT 8 AM
     Route: 048
     Dates: start: 20221228, end: 20221229
  23. PANTOPRAZOLE SODIUM [Concomitant]
     Active Substance: PANTOPRAZOLE SODIUM
     Indication: Product used for unknown indication
     Dosage: AT 8 AM
     Route: 048
     Dates: start: 20221228, end: 20221229
  24. PANTOPRAZOLE SODIUM [Concomitant]
     Active Substance: PANTOPRAZOLE SODIUM
     Dosage: 9 AM, 9 PM
     Route: 042
     Dates: start: 20221228, end: 20221229
  25. LYRICA [Concomitant]
     Active Substance: PREGABALIN
     Indication: Product used for unknown indication
     Dosage: AT BEDTIME, 8 PM
     Route: 048
     Dates: start: 20221228, end: 20221229
  26. PIPERACILLIN SODIUM\TAZOBACTAM SODIUM [Concomitant]
     Active Substance: PIPERACILLIN SODIUM\TAZOBACTAM SODIUM
     Indication: Product used for unknown indication
     Dosage: 4-0.5 G, 20 ML, 12:30 AM, 8:30 AM
     Route: 042
     Dates: start: 20221228, end: 20221229
  27. PIPERACILLIN SODIUM\TAZOBACTAM SODIUM [Concomitant]
     Active Substance: PIPERACILLIN SODIUM\TAZOBACTAM SODIUM
     Dosage: 4-0.5 G, 20 ML, 12:30 AM, 6:30 AM
     Route: 042
     Dates: start: 20221229, end: 20221229
  28. BIO-K + CL1285 + THAN 50 YRS [Concomitant]
     Indication: Product used for unknown indication
     Dosage: 50 BILLION, 4 PM
     Route: 048
     Dates: start: 20221228, end: 20221229
  29. BIO-K + CL1285 + THAN 50 YRS [Concomitant]
     Dosage: 50 BILLION, 4 PM
     Route: 048
     Dates: start: 20221229, end: 20230102
  30. BIO-K + CL1285 + THAN 50 YRS [Concomitant]
     Dosage: 50 BILLION, 4 PM
     Route: 048
     Dates: start: 20230102, end: 20230102
  31. BIO-K + CL1285 + THAN 50 YRS [Concomitant]
     Dosage: 50 BILLION, 4 PM
     Route: 048
     Dates: start: 20230102, end: 20230104
  32. BIO-K + CL1285 + THAN 50 YRS [Concomitant]
     Dosage: 50 BILLION, 4 PM
     Route: 048
     Dates: start: 20230104, end: 20230106
  33. SOLU-MEDROL [Concomitant]
     Active Substance: METHYLPREDNISOLONE SODIUM SUCCINATE
     Indication: Product used for unknown indication
     Dosage: 12 AM, 8 AM, 4 PM
     Route: 042
     Dates: start: 20221228, end: 20221229
  34. SOLU-MEDROL [Concomitant]
     Active Substance: METHYLPREDNISOLONE SODIUM SUCCINATE
     Dosage: 12 AM, 8 AM, 4 PM
     Route: 042
     Dates: start: 20221229, end: 20230106
  35. WINGED INFUSION SET [Concomitant]
     Indication: Product used for unknown indication
     Dosage: 10 ML VIAL, 1 ML, 9 AM, 9 PM
     Route: 042
     Dates: start: 20221228, end: 20230113
  36. VANCOCIN+DEXTROSE [Concomitant]
     Indication: Product used for unknown indication
     Dosage: STAT - SHOULD BE ADMINISTERED WITHIN 30 MIN AFTER IT IS ORDERED
     Route: 042
     Dates: start: 20221229, end: 20221229
  37. VANCOCIN+DEXTROSE [Concomitant]
     Dosage: 8 AM 8 PM
     Route: 042
     Dates: start: 20221229, end: 20221230
  38. VANCOCIN+DEXTROSE [Concomitant]
     Dates: start: 20221231, end: 20230101
  39. PHOSPHATE-NOVARTIS [Concomitant]
     Indication: Product used for unknown indication
     Dosage: 8 AM, 4 PM
     Route: 048
     Dates: start: 20221229, end: 20221229
  40. MAGNESIUM [Concomitant]
     Active Substance: MAGNESIUM
     Indication: Product used for unknown indication
     Dosage: 8 AM, 12 PM, 4 PM
     Route: 048
     Dates: start: 20221229, end: 20221229
  41. LEVOPHED+NACL (DOUBLE) [Concomitant]
     Indication: Product used for unknown indication
     Dosage: AS PER PRESCRIPTION, 4 ML VIAL
     Route: 042
     Dates: start: 20221229, end: 20230101
  42. DIPRIVAN [Concomitant]
     Active Substance: PROPOFOL
     Indication: Product used for unknown indication
     Dosage: VIAL 100 ML, 10 ML/H
     Route: 042
     Dates: start: 20221229, end: 20230105
  43. DIPRIVAN [Concomitant]
     Active Substance: PROPOFOL
     Dosage: VIAL 100 ML
     Route: 042
     Dates: start: 20230105, end: 20230113
  44. PERIDEX [Concomitant]
     Active Substance: CHLORHEXIDINE GLUCONATE
     Indication: Product used for unknown indication
     Dosage: 473 ML BOTTLE, 5 ML, 9 AM, 9 PM
     Dates: start: 20221229, end: 20230113
  45. SYSTANE (HYPROMELLOSE 2910 (4000 MPA.S)) [Concomitant]
     Active Substance: HYPROMELLOSE 2910 (4000 MPA.S)
     Indication: Product used for unknown indication
     Dosage: 94-3%, 3.5 G TUBE, 1 APPLICATION, 12 AM, 8 AM, 4 PM
     Route: 047
     Dates: start: 20221229, end: 20230113
  46. SYSTANE (HYPROMELLOSE 2910 (4000 MPA.S)) [Concomitant]
     Active Substance: HYPROMELLOSE 2910 (4000 MPA.S)
     Dosage: 94-3%, 3.5 G TUBE, 1 APPLICATION, PRN
     Route: 047
     Dates: start: 20221229, end: 20230113
  47. MEROPENEM [Concomitant]
     Active Substance: MEROPENEM
     Indication: Product used for unknown indication
     Dosage: 12:30 AM, 8:30
     Route: 042
     Dates: start: 20221229, end: 20221230
  48. MEROPENEM [Concomitant]
     Active Substance: MEROPENEM
     Dosage: 9 AM, 9 PM
     Route: 042
     Dates: start: 20221230, end: 20230102
  49. MEROPENEM [Concomitant]
     Active Substance: MEROPENEM
     Dosage: 9 AM, 9 PM
     Route: 042
     Dates: start: 20230102, end: 20230104
  50. PREVACID [Concomitant]
     Active Substance: LANSOPRAZOLE
     Indication: Product used for unknown indication
     Dosage: VIA TUBE, AT 8 AM
     Dates: start: 20221229, end: 20230103
  51. ATROVENT [Concomitant]
     Active Substance: IPRATROPIUM BROMIDE
     Indication: Product used for unknown indication
     Dosage: 12 AM, 4 AM, 8 AM
     Dates: start: 20221229, end: 20230113
  52. ATROVENT [Concomitant]
     Active Substance: IPRATROPIUM BROMIDE
     Dates: start: 20221229, end: 20230113
  53. TAMIFLU [Concomitant]
     Active Substance: OSELTAMIVIR PHOSPHATE
     Indication: Product used for unknown indication
     Dosage: 8 AM, 4 PM
     Route: 048
     Dates: start: 20221229, end: 20221230
  54. TAMIFLU [Concomitant]
     Active Substance: OSELTAMIVIR PHOSPHATE
     Dosage: 8 AM, 4 PM
     Route: 048
     Dates: start: 20221230, end: 20230103
  55. TAMIFLU [Concomitant]
     Active Substance: OSELTAMIVIR PHOSPHATE
     Dosage: AT 8 AM
     Route: 048
     Dates: start: 20230103, end: 20230103
  56. APRESOLINE HYDROCHLORIDE [Concomitant]
     Active Substance: HYDRALAZINE HYDROCHLORIDE
     Indication: Product used for unknown indication
     Dosage: 1 ML VIAL
     Route: 042
     Dates: start: 20221231, end: 20230101
  57. NORVASC [Concomitant]
     Active Substance: AMLODIPINE BESYLATE
     Indication: Product used for unknown indication
     Dosage: AT 8 AM
     Route: 048
     Dates: start: 20221231, end: 20221231
  58. NORVASC [Concomitant]
     Active Substance: AMLODIPINE BESYLATE
     Dosage: AT 8 AM
     Route: 048
     Dates: start: 20221231, end: 20230101
  59. FENTANYL + NACL (INFUSION) [Concomitant]
     Indication: Product used for unknown indication
     Dosage: 250 ML BAG, 5 AT 10 ML/H
     Route: 042
     Dates: start: 20221231, end: 20230113
  60. LASIX [Concomitant]
     Active Substance: FUROSEMIDE
     Indication: Product used for unknown indication
     Dosage: 4 ML VIAL, 12 AM, 12 PM
     Route: 042
     Dates: start: 20230101, end: 20230101
  61. LASIX [Concomitant]
     Active Substance: FUROSEMIDE
     Dosage: 4 ML VIAL, 12 AM, 8 AM, 4 PM
     Route: 042
     Dates: start: 20230102, end: 20230103
  62. LASIX [Concomitant]
     Active Substance: FUROSEMIDE
     Dosage: 250 ML, 10 ML/H
     Route: 042
     Dates: start: 20230103, end: 20230105
  63. LASIX [Concomitant]
     Active Substance: FUROSEMIDE
     Dosage: 250 ML, 7.5 ML/H
     Route: 042
     Dates: start: 20230105, end: 20230106
  64. LASIX [Concomitant]
     Active Substance: FUROSEMIDE
     Dosage: 250 ML, 7.5 ML/H
     Route: 042
     Dates: start: 20230105, end: 20230106
  65. LEVOPHED + NACL (DOUBLE) [Concomitant]
     Indication: Product used for unknown indication
     Dosage: 4 ML VIAL, AS PER PRESCRIPTION
     Route: 042
     Dates: start: 20230101, end: 20230111
  66. ZEMURON + DEXTROSE [Concomitant]
     Indication: Product used for unknown indication
     Dosage: 5 ML VIAL, 8 AT 22 ML/H
     Route: 042
     Dates: start: 20230101, end: 20230102
  67. ZEMURON + DEXTROSE [Concomitant]
     Dosage: 5 ML VIAL, 8 AT 22 ML/H
     Route: 042
     Dates: start: 20230102, end: 20230103
  68. ZEMURON + DEXTROSE [Concomitant]
     Dosage: 5 ML VIAL
     Route: 042
     Dates: start: 20230103, end: 20230106
  69. FLOLAN NEB. [Concomitant]
     Indication: Product used for unknown indication
     Dates: start: 20230101, end: 20230103
  70. FLOLAN NEB. [Concomitant]
     Dates: start: 20230103, end: 20230106
  71. HEPARIN [Concomitant]
     Active Substance: HEPARIN SODIUM
     Indication: Product used for unknown indication
     Dosage: 0.5 ML VIAL
     Route: 042
     Dates: start: 20230102, end: 20230103
  72. HEPARIN [Concomitant]
     Active Substance: HEPARIN SODIUM
     Dosage: 250 ML BAG, 100 UNITS - 50, SLOW IV
     Route: 042
     Dates: start: 20230102, end: 20230103
  73. HEPARIN [Concomitant]
     Active Substance: HEPARIN SODIUM
     Dosage: 0.5 ML SYRINGE, 9 AM, 9 PM
     Route: 058
     Dates: start: 20230102, end: 20230103
  74. VASOPRESSIN [Concomitant]
     Active Substance: VASOPRESSIN
     Indication: Product used for unknown indication
     Dosage: 1 ML VIAL
     Route: 042
     Dates: start: 20230102, end: 20230103
  75. BACTRIM + DEXTROSE [Concomitant]
     Indication: Product used for unknown indication
     Dosage: 5 ML AMPULE, 16-80 MG/ML, 12:30 AM, 8:30
     Route: 042
     Dates: start: 20230102, end: 20230103
  76. BACTRIM + DEXTROSE [Concomitant]
     Dosage: 5 ML AMPULE, 16-80 MG/ML, 9 AM, 9 PM
     Route: 042
     Dates: start: 20230103, end: 20230106
  77. ANTICOAGULANT SUSPENSION [Concomitant]
     Indication: Product used for unknown indication
     Route: 048
     Dates: start: 20230102, end: 20230113
  78. NEBCIN [Concomitant]
     Active Substance: TOBRAMYCIN SULFATE
     Indication: Product used for unknown indication
     Dosage: 2 ML VIAL, 7:30 PM
     Route: 042
     Dates: start: 20230102, end: 20230113
  79. NEBCIN [Concomitant]
     Active Substance: TOBRAMYCIN SULFATE
     Dosage: 2 ML VIAL, 7:30 PM
     Route: 042
     Dates: start: 20230104, end: 20230104
  80. NEBCIN [Concomitant]
     Active Substance: TOBRAMYCIN SULFATE
     Dosage: 2 ML VIAL, NEB
     Dates: start: 20230104, end: 20230104
  81. NEBCIN [Concomitant]
     Active Substance: TOBRAMYCIN SULFATE
     Dosage: 2 ML VIAL, NEB
     Dates: start: 20230104, end: 20230105
  82. NEBCIN [Concomitant]
     Active Substance: TOBRAMYCIN SULFATE
     Dosage: 2 ML VIAL, ENDO, 1 AM, 1 PM
     Dates: start: 20230105, end: 20230107
  83. VITAMIN K1 [Concomitant]
     Active Substance: PHYTONADIONE
     Indication: Product used for unknown indication
     Dosage: 1 ML AMPULE, STAT - SHOULD BE ADMINISTERED WITHIN 30 MIN AFTER IT IS ORDERED
     Route: 042
     Dates: start: 20230103, end: 20230103
  84. FOLVITE [Concomitant]
     Active Substance: FOLIC ACID
     Indication: Product used for unknown indication
     Dosage: 10 ML VIAL, AT 9 AM
     Route: 042
     Dates: start: 20230103, end: 20230110
  85. ZAROXOLYN [Concomitant]
     Active Substance: METOLAZONE
     Indication: Product used for unknown indication
     Dosage: AT 8 AM
     Route: 048
     Dates: start: 20230104, end: 20230106
  86. DIETARY SUPPLEMENT [Concomitant]
     Active Substance: DIETARY SUPPLEMENT
     Indication: Product used for unknown indication
     Dates: start: 20230104, end: 20230113
  87. CANCIDAS [Concomitant]
     Active Substance: CASPOFUNGIN ACETATE
     Indication: Product used for unknown indication
     Route: 042
     Dates: start: 20230104, end: 20230104
  88. CANCIDAS [Concomitant]
     Active Substance: CASPOFUNGIN ACETATE
     Dosage: 260 ML
     Route: 042
     Dates: start: 20230105, end: 20230109
  89. TYGACIL + NACL [Concomitant]
     Indication: Product used for unknown indication
     Dosage: STAT - SHOULD BE ADMINISTERED WITHIN 30 MIN AFTER IT IS ORDERED
     Route: 042
     Dates: start: 20230104, end: 20230104
  90. TYGACIL + NACL [Concomitant]
     Route: 042
     Dates: start: 20230104, end: 20230109
  91. KCL [Concomitant]
     Active Substance: POTASSIUM CHLORIDE
     Indication: Product used for unknown indication
     Dosage: 20 MEQ/15 ML, 8 AM, 4 PM
     Route: 048
     Dates: start: 20230105, end: 20230106
  92. INSULIN HUMAN [Concomitant]
     Active Substance: INSULIN HUMAN
     Indication: Product used for unknown indication
     Dosage: 3 ML VIAL, 6 AM, 6 PM
     Route: 058
     Dates: start: 20230105, end: 20230107

REACTIONS (2)
  - Intestinal ischaemia [Fatal]
  - Drug resistance [Unknown]

NARRATIVE: CASE EVENT DATE: 20230106
